FAERS Safety Report 4714849-9 (Version None)
Quarter: 2005Q3

REPORT INFORMATION
  Report Type: 
  Country: None (occurrence: None)
  Receive Date: 20050714
  Receipt Date: 20050714
  Transmission Date: 20060218
  Serious: Yes (Hospitalization)
  Sender: FDA-Public Use
  Company Number: None

PATIENT
  Age: 60 Year
  Sex: Male
  Weight: 92 kg

DRUGS (1)
  1. FLEET ACCU PREP [Suspect]
     Indication: COLONOSCOPY
     Dosage: 45 ML;  Q12H; PO
     Route: 048
     Dates: start: 20050418, end: 20050419

REACTIONS (3)
  - BILIARY DYSKINESIA [None]
  - COLON ADENOMA [None]
  - RENAL ADENOMA [None]
